FAERS Safety Report 9606165 (Version 1)
Quarter: 2013Q4

REPORT INFORMATION
  Report Type: Spontaneous
  Country: US (occurrence: US)
  Receive Date: 20131008
  Receipt Date: 20131008
  Transmission Date: 20140711
  Serious: No
  Sender: FDA-Public Use
  Company Number: US-AMGEN-USASP2013046209

PATIENT
  Age: 53 Year
  Sex: Male
  Weight: 47.62 kg

DRUGS (9)
  1. PROLIA [Suspect]
     Indication: OSTEOPOROSIS
     Dosage: UNK
     Dates: start: 20130120
  2. ASACOL [Concomitant]
  3. REMICADE [Concomitant]
     Dosage: 3 UNK, UNK
     Dates: start: 20130120
  4. OXYCODONE [Concomitant]
     Dosage: UNK UNK, Q4H
  5. PREDNISONE [Concomitant]
     Dosage: 10 MG, QD
  6. ASPIRIN [Concomitant]
     Dosage: 81 MG, UNK
  7. ZOFRAN                             /00955301/ [Concomitant]
  8. PRILOSEC                           /00661201/ [Concomitant]
  9. DIAZEPAM [Concomitant]
     Dosage: 10 MG, BID

REACTIONS (1)
  - Drug ineffective [Unknown]
